FAERS Safety Report 5509302-9 (Version None)
Quarter: 2007Q4

REPORT INFORMATION
  Report Type: 
  Country: None (occurrence: None)
  Receive Date: 20071107
  Receipt Date: 20070629
  Transmission Date: 20080405
  Serious: Yes (Hospitalization, Other)
  Sender: FDA-Public Use
  Company Number: US-GENENTECH-224729

PATIENT
  Sex: Female
  Weight: 111 kg

DRUGS (20)
  1. XOLAIR [Suspect]
     Indication: ASTHMA
     Dosage: 150 MG, Q2W
     Route: 058
     Dates: start: 20060401
  2. XOLAIR [Suspect]
     Dosage: 300 MG, Q2W
     Route: 058
     Dates: start: 20060410
  3. XOLAIR [Suspect]
     Dosage: 40 MG, QD
     Dates: start: 20060505
  4. SINGULAIR [Concomitant]
     Indication: DRUG USE FOR UNKNOWN INDICATION
     Route: 065
  5. ADVAIR DISKUS 100/50 [Concomitant]
     Indication: DRUG USE FOR UNKNOWN INDICATION
     Route: 065
  6. ACCOLATE [Concomitant]
     Indication: DRUG USE FOR UNKNOWN INDICATION
     Route: 065
  7. DIAVAN (DIETARY SUPPLEMENT) [Concomitant]
     Indication: DRUG USE FOR UNKNOWN INDICATION
     Dosage: 320 UNK, QD
  8. NORVASC [Concomitant]
     Indication: DRUG USE FOR UNKNOWN INDICATION
  9. NEXIUM [Concomitant]
     Indication: DRUG USE FOR UNKNOWN INDICATION
     Dosage: 400 UNK, QD
     Route: 048
  10. ZOCOR [Concomitant]
     Indication: DRUG USE FOR UNKNOWN INDICATION
  11. ALLEGRA [Concomitant]
     Indication: DRUG USE FOR UNKNOWN INDICATION
  12. ALBUTEROL [Concomitant]
     Indication: DRUG USE FOR UNKNOWN INDICATION
  13. PROTONIX [Concomitant]
     Indication: GASTROOESOPHAGEAL REFLUX DISEASE
  14. PERCOCET [Concomitant]
     Indication: PAIN
  15. LOTRIMIN [Concomitant]
     Indication: VAGINAL INFECTION
  16. NYSTATIN [Concomitant]
     Indication: DRUG USE FOR UNKNOWN INDICATION
  17. TYLENOL (CAPLET) [Concomitant]
     Indication: DRUG USE FOR UNKNOWN INDICATION
  18. BYETTA [Concomitant]
     Indication: DRUG USE FOR UNKNOWN INDICATION
  19. AVANDIA [Concomitant]
     Indication: DRUG USE FOR UNKNOWN INDICATION
  20. ASPIRIN [Concomitant]
     Indication: DRUG USE FOR UNKNOWN INDICATION

REACTIONS (6)
  - CONTUSION [None]
  - FUNGAL INFECTION [None]
  - PAIN [None]
  - SKIN INFECTION [None]
  - SKIN NODULE [None]
  - SKIN ULCER [None]
